FAERS Safety Report 17218953 (Version 3)
Quarter: 2020Q1

REPORT INFORMATION
  Report Type: Spontaneous
  Country: FR (occurrence: FR)
  Receive Date: 20191231
  Receipt Date: 20200122
  Transmission Date: 20200409
  Serious: Yes (Hospitalization, Other)
  Sender: FDA-Public Use
  Company Number: FR-PFIZER INC-2019561495

PATIENT
  Age: 86 Year
  Sex: Female

DRUGS (10)
  1. BETAXOLOL HYDROCHLORIDE. [Suspect]
     Active Substance: BETAXOLOL HYDROCHLORIDE
     Indication: TOXICITY TO VARIOUS AGENTS
     Dosage: UNK
     Route: 048
     Dates: start: 20191110, end: 20191110
  2. PERINDOPRIL [Suspect]
     Active Substance: PERINDOPRIL
     Indication: TOXICITY TO VARIOUS AGENTS
     Dosage: UNK UNK, UNK
     Route: 048
     Dates: start: 20191110, end: 20191110
  3. AMIODARONE HCL [Suspect]
     Active Substance: AMIODARONE HYDROCHLORIDE
     Indication: TOXICITY TO VARIOUS AGENTS
     Dosage: UNK UNK, UNK
     Route: 048
     Dates: start: 20191110, end: 20191110
  4. XARELTO [Suspect]
     Active Substance: RIVAROXABAN
     Indication: TOXICITY TO VARIOUS AGENTS
     Dosage: UNK UNK, UNK
     Route: 048
     Dates: start: 20191110, end: 20191110
  5. DONEPEZIL HCL [Suspect]
     Active Substance: DONEPEZIL HYDROCHLORIDE
     Indication: TOXICITY TO VARIOUS AGENTS
     Dosage: UNK UNK, UNK
     Route: 048
     Dates: start: 20191110, end: 20191110
  6. PARACETAMOL [Suspect]
     Active Substance: ACETAMINOPHEN
     Indication: TOXICITY TO VARIOUS AGENTS
     Dosage: UNK UNK, UNK
     Route: 048
     Dates: start: 20191110, end: 20191110
  7. TRAMADOL HYDROCHLORIDE. [Suspect]
     Active Substance: TRAMADOL HYDROCHLORIDE
     Indication: TOXICITY TO VARIOUS AGENTS
     Dosage: UNK UNK, UNK
     Route: 048
     Dates: start: 20191110, end: 20191110
  8. ESOMEPRAZOLE MAGNESIUM. [Suspect]
     Active Substance: ESOMEPRAZOLE MAGNESIUM
     Indication: TOXICITY TO VARIOUS AGENTS
     Dosage: UNK UNK, UNK
     Route: 048
     Dates: start: 20191110, end: 20191110
  9. PRAVASTATIN SODIUM. [Suspect]
     Active Substance: PRAVASTATIN SODIUM
     Indication: TOXICITY TO VARIOUS AGENTS
     Dosage: UNK UNK, UNK
     Route: 048
     Dates: start: 20191110, end: 20191110
  10. SPAGULAX [Suspect]
     Active Substance: PLANTAGO OVATA SEED
     Indication: TOXICITY TO VARIOUS AGENTS
     Dosage: UNK
     Route: 048
     Dates: start: 20191110, end: 20191110

REACTIONS (4)
  - Bradycardia [Not Recovered/Not Resolved]
  - Off label use [Unknown]
  - Electrocardiogram QT prolonged [Not Recovered/Not Resolved]
  - Product use in unapproved indication [Unknown]

NARRATIVE: CASE EVENT DATE: 20191110
